FAERS Safety Report 10486822 (Version 4)
Quarter: 2015Q1

REPORT INFORMATION
  Report Type: Spontaneous
  Country: JP (occurrence: JP)
  Receive Date: 20141001
  Receipt Date: 20150318
  Transmission Date: 20150720
  Serious: Yes (Hospitalization)
  Sender: FDA-Public Use
  Company Number: JP-ASTELLAS-2014JP021664

PATIENT
  Age: 74 Year
  Sex: Male

DRUGS (12)
  1. GASTER [Suspect]
     Active Substance: FAMOTIDINE
     Indication: PROPHYLAXIS AGAINST GASTROINTESTINAL ULCER
     Route: 042
     Dates: start: 20140924, end: 20140926
  2. WARFARIN [Concomitant]
     Active Substance: WARFARIN
     Indication: CEREBRAL INFARCTION
     Route: 048
     Dates: start: 20141006, end: 20141026
  3. HEPARIN SODIUM. [Concomitant]
     Active Substance: HEPARIN SODIUM
     Indication: CEREBRAL INFARCTION
     Route: 041
     Dates: start: 20140924, end: 20141007
  4. PHENOBAL                           /00023201/ [Concomitant]
     Active Substance: PHENOBARBITAL
     Indication: CONVULSION PROPHYLAXIS
     Route: 030
     Dates: start: 20140924, end: 20140926
  5. FENTOS [Concomitant]
     Active Substance: FENTANYL
     Indication: PROSTATE CANCER
     Route: 061
     Dates: start: 20140924
  6. PREDNISOLONE. [Concomitant]
     Active Substance: PREDNISOLONE
     Indication: PROSTATE CANCER
     Route: 048
     Dates: start: 20140924
  7. METHYCOOL [Concomitant]
     Active Substance: METHYLCOBALAMIN
     Indication: PROSTATE CANCER
     Route: 048
     Dates: start: 20141105
  8. XTANDI [Suspect]
     Active Substance: ENZALUTAMIDE
     Indication: PROSTATE CANCER
     Route: 048
     Dates: start: 20140924
  9. RADICUT [Concomitant]
     Active Substance: EDARAVONE
     Indication: CEREBRAL INFARCTION
     Route: 041
     Dates: start: 20140924, end: 20141007
  10. REBAMIPIDE [Concomitant]
     Active Substance: REBAMIPIDE
     Indication: PROSTATE CANCER
     Route: 048
     Dates: start: 20141105
  11. HARNAL [Suspect]
     Active Substance: TAMSULOSIN HYDROCHLORIDE
     Indication: PROSTATE CANCER
     Dosage: 0.2 MG, ONCE DAILY
     Route: 048
     Dates: start: 20141105
  12. WARFARIN [Concomitant]
     Active Substance: WARFARIN
     Route: 048
     Dates: start: 20141027

REACTIONS (3)
  - Off label use [Unknown]
  - Cerebral infarction [Recovering/Resolving]
  - Off label use [Unknown]

NARRATIVE: CASE EVENT DATE: 20140924
